FAERS Safety Report 7594363-6 (Version None)
Quarter: 2011Q3

REPORT INFORMATION
  Report Type: 
  Country: None (occurrence: None)
  Receive Date: 20110707
  Receipt Date: 20110629
  Transmission Date: 20111222
  Serious: Yes (Hospitalization)
  Sender: FDA-Public Use
  Company Number: US-BIOGENIDEC-2011BI019334

PATIENT
  Age: 74 Year
  Sex: Female
  Weight: 56 kg

DRUGS (6)
  1. DIPHENHYDRAMINE-APAP [Concomitant]
     Route: 048
  2. IBUPROFEN [Concomitant]
  3. CLOPIDOGREL [Concomitant]
     Route: 048
  4. TYSABRI [Suspect]
     Indication: MULTIPLE SCLEROSIS
     Route: 042
     Dates: start: 20080109
  5. LOVASTATIN [Concomitant]
     Route: 048
  6. TRAMADOL HCL [Concomitant]
     Route: 048
     Dates: start: 20110204

REACTIONS (14)
  - DECUBITUS ULCER [None]
  - ESCHERICHIA INFECTION [None]
  - PSEUDOMONAS TEST POSITIVE [None]
  - DEHYDRATION [None]
  - ARTHRALGIA [None]
  - BLOOD GLUCOSE INCREASED [None]
  - CLOSTRIDIUM DIFFICILE COLITIS [None]
  - ASTHENIA [None]
  - BACTERAEMIA [None]
  - NAUSEA [None]
  - BETA HAEMOLYTIC STREPTOCOCCAL INFECTION [None]
  - ENTEROCOCCUS TEST POSITIVE [None]
  - OSTEOMYELITIS [None]
  - PROTEUS TEST POSITIVE [None]
